FAERS Safety Report 19934645 (Version 2)
Quarter: 2021Q4

REPORT INFORMATION
  Report Type: Spontaneous
  Country: LV (occurrence: LV)
  Receive Date: 20211008
  Receipt Date: 20211105
  Transmission Date: 20220303
  Serious: Yes (Other)
  Sender: FDA-Public Use
  Company Number: LV-BAYER-2021A224510

PATIENT

DRUGS (5)
  1. EYLEA [Suspect]
     Active Substance: AFLIBERCEPT
     Indication: Neovascular age-related macular degeneration
     Dosage: OS, ONCE
     Route: 031
     Dates: start: 20210212, end: 20210212
  2. EYLEA [Suspect]
     Active Substance: AFLIBERCEPT
     Dosage: OS, ONCE
     Route: 031
     Dates: start: 20210611, end: 20210611
  3. NEPAFENAC [Concomitant]
     Active Substance: NEPAFENAC
     Indication: Product used for unknown indication
     Dosage: OS, 3 TIMES
     Dates: start: 20210414
  4. NEPAFENAC [Concomitant]
     Active Substance: NEPAFENAC
     Dosage: OS, 3 TIMES
     Dates: start: 20210519
  5. NEPAFENAC [Concomitant]
     Active Substance: NEPAFENAC
     Dosage: OS, 3 TIMES
     Dates: start: 20210707

REACTIONS (3)
  - Macular fibrosis [Recovered/Resolved]
  - Neovascular age-related macular degeneration [Recovered/Resolved]
  - Inappropriate schedule of product administration [Unknown]

NARRATIVE: CASE EVENT DATE: 20210414
